FAERS Safety Report 6275092-8 (Version None)
Quarter: 2009Q3

REPORT INFORMATION
  Report Type: 
  Country: None (occurrence: None)
  Receive Date: 20090721
  Receipt Date: 20090709
  Transmission Date: 20100115
  Serious: Yes (Hospitalization, Other)
  Sender: FDA-Public Use
  Company Number: PHHY2009AT19166

PATIENT
  Sex: Female

DRUGS (2)
  1. ZOMETA [Suspect]
     Indication: BREAST CANCER
     Dosage: 3 WEEKLY
     Dates: start: 20050110, end: 20090310
  2. ACTONEL [Concomitant]
     Dosage: 1 X 1
     Dates: end: 20090101

REACTIONS (7)
  - BONE DISORDER [None]
  - LYMPH NODE PAIN [None]
  - LYMPHADENOPATHY [None]
  - METASTASIS [None]
  - OSTEONECROSIS [None]
  - PAIN [None]
  - SWELLING [None]
